FAERS Safety Report 25728995 (Version 1)
Quarter: 2025Q3

REPORT INFORMATION
  Report Type: Report from Study
  Country: US (occurrence: US)
  Receive Date: 20250826
  Receipt Date: 20250826
  Transmission Date: 20251021
  Serious: Yes (Hospitalization, Disabling)
  Sender: BIOGEN
  Company Number: US-BIOGEN-2025BI01321583

PATIENT
  Sex: Male

DRUGS (1)
  1. SKYCLARYS [Suspect]
     Active Substance: OMAVELOXOLONE
     Indication: Friedreich^s ataxia
     Route: 050

REACTIONS (3)
  - Cardiac disorder [Unknown]
  - Friedreich^s ataxia [Unknown]
  - COVID-19 [Unknown]
